FAERS Safety Report 7248593-3 (Version None)
Quarter: 2011Q1

REPORT INFORMATION
  Report Type: 
  Country: None (occurrence: None)
  Receive Date: 20110128
  Receipt Date: 20101222
  Transmission Date: 20110831
  Serious: Yes (Other)
  Sender: FDA-Public Use
  Company Number: HR-BAYER-2010-007649

PATIENT
  Age: 74 Year
  Sex: Male

DRUGS (16)
  1. CALCIUM CHANNEL BLOCKERS [Concomitant]
     Dosage: UNK
  2. MOXONIDIN [Concomitant]
  3. ACETYLSALICYLIC ACID SRT [Interacting]
     Indication: ATRIAL FIBRILLATION
     Dosage: DAILY DOSE 100 MG
     Route: 048
     Dates: start: 20050101, end: 20101101
  4. AMIODARONE HCL [Suspect]
     Indication: ATRIAL FIBRILLATION
     Dosage: UNK
     Dates: start: 20101025, end: 20101101
  5. INSULIN [INSULIN] [Concomitant]
  6. BISOPROLOL [BISOPROLOL] [Suspect]
  7. AMOXICILLIN AND CLAVULANATE POTASSIUM [Interacting]
     Indication: PNEUMONIA
     Dosage: UNK
     Dates: start: 20101001
  8. CANDESARTAN [Suspect]
     Dosage: UNK
     Dates: end: 20101101
  9. CEFUROXIN [Suspect]
     Dosage: UNK
     Dates: end: 20101101
  10. WARFARIN SODIUM [Interacting]
     Indication: ATRIAL FIBRILLATION
     Dosage: UNK
     Dates: start: 20101025, end: 20101101
  11. AZITHROMYCIN [Suspect]
     Indication: PNEUMONIA
     Dosage: UNK
     Dates: start: 20101001
  12. BETA BLOCKING AGENTS [Concomitant]
     Dosage: UNK
  13. ENOXAPARIN SODIUM [Concomitant]
     Dosage: UNK
     Dates: end: 20101101
  14. AMIODARONE HCL [Suspect]
     Dosage: 400 MG, UNK
     Dates: start: 20101103
  15. FUROSEMIDE [FUROSEMIDE] [Suspect]
     Dosage: UNK
     Dates: end: 20101101
  16. ALOPURINOL [Suspect]

REACTIONS (5)
  - LEUKOPENIA [None]
  - PROTHROMBIN TIME SHORTENED [None]
  - BLOOD CREATININE INCREASED [None]
  - RENAL IMPAIRMENT [None]
  - OLIGURIA [None]
